FAERS Safety Report 10666970 (Version 1)
Quarter: 2014Q4

REPORT INFORMATION
  Report Type: Spontaneous
  Country: US (occurrence: None)
  Receive Date: 20141219
  Receipt Date: 20141219
  Transmission Date: 20150529
  Serious: No
  Sender: FDA-Public Use
  Company Number: None

PATIENT
  Age: 43 Year
  Sex: Female
  Weight: 61.24 kg

DRUGS (1)
  1. FLUOXETINE HCL [Suspect]
     Active Substance: FLUOXETINE HYDROCHLORIDE
     Indication: MAJOR DEPRESSION
     Route: 048
     Dates: start: 20140909, end: 20141105

REACTIONS (3)
  - Product quality issue [None]
  - Major depression [None]
  - Product substitution issue [None]

NARRATIVE: CASE EVENT DATE: 20141021
